FAERS Safety Report 17402059 (Version 1)
Quarter: 2020Q1

REPORT INFORMATION
  Report Type: Spontaneous
  Country: US (occurrence: US)
  Receive Date: 20200211
  Receipt Date: 20200211
  Transmission Date: 20200409
  Serious: Yes (Other)
  Sender: FDA-Public Use
  Company Number: US-APOTEX-2020AP007343

PATIENT
  Age: 3 Year
  Sex: Male
  Weight: 18.1 kg

DRUGS (1)
  1. ALBUTEROL. [Suspect]
     Active Substance: ALBUTEROL
     Indication: ASTHMA
     Dosage: UNK, INHALED
     Route: 055

REACTIONS (1)
  - Supraventricular tachycardia [Unknown]
